FAERS Safety Report 20919863 (Version 1)
Quarter: 2022Q2

REPORT INFORMATION
  Report Type: Spontaneous
  Country: JP (occurrence: JP)
  Receive Date: 20220606
  Receipt Date: 20220606
  Transmission Date: 20220721
  Serious: Yes (Life-Threatening)
  Sender: FDA-Public Use
  Company Number: JP-PFIZER INC-202200751880

PATIENT
  Age: 77 Year
  Sex: Female
  Weight: 48 kg

DRUGS (24)
  1. PREGABALIN [Suspect]
     Active Substance: PREGABALIN
     Dosage: 50 MG, DAILY
  2. DULOXETINE [Suspect]
     Active Substance: DULOXETINE
     Dosage: 20 MG, DAILY
  3. PROPOFOL [Suspect]
     Active Substance: PROPOFOL
     Indication: Anaesthesia
     Dosage: 3 UG/ML
  4. PROPOFOL [Suspect]
     Active Substance: PROPOFOL
     Dosage: 1.5-2 UG/ML
  5. REMIFENTANIL [Suspect]
     Active Substance: REMIFENTANIL
     Indication: Anaesthesia
     Dosage: 0.2 UG/KG/MIN
  6. REMIFENTANIL [Suspect]
     Active Substance: REMIFENTANIL
     Dosage: 0.1-0.2 UG/KG/MIN
  7. FENTANYL [Suspect]
     Active Substance: FENTANYL
     Indication: Anaesthesia
     Dosage: 100 UG
  8. FENTANYL [Suspect]
     Active Substance: FENTANYL
     Dosage: 50 UG
  9. ROCURONIUM [Suspect]
     Active Substance: ROCURONIUM BROMIDE
     Indication: Anaesthesia
     Dosage: 30 MG
  10. AMLODIPINE BESYLATE [Concomitant]
     Active Substance: AMLODIPINE BESYLATE
     Dosage: 10 MG, DAILY
  11. ATORVASTATIN CALCIUM [Concomitant]
     Active Substance: ATORVASTATIN CALCIUM
     Dosage: 10 MG, DAILY
  12. VALSARTAN [Concomitant]
     Active Substance: VALSARTAN
     Dosage: 80 MG, DAILY
  13. ADENOSINE TRIPHOSPHATE [Concomitant]
     Active Substance: ADENOSINE TRIPHOSPHATE
     Dosage: 300 MG, DAILY
  14. METHYLCOBALAMIN [Concomitant]
     Active Substance: METHYLCOBALAMIN
     Dosage: 1000/UG
  15. ALENDRONATE [Concomitant]
     Active Substance: ALENDRONATE SODIUM
     Dosage: 35 MG, DAILY
  16. LOXOPROFEN [Concomitant]
     Active Substance: LOXOPROFEN
     Dosage: 120 MG, DAILY
  17. NEUROTROPIN [CYANOCOBALAMIN;LIDOCAINE HYDROCHLORIDE;PYRIDOXINE HYDROCH [Concomitant]
     Dosage: 8 UNITS
  18. LANSOPRAZOLE [Concomitant]
     Active Substance: LANSOPRAZOLE
     Dosage: 15 MG, DAILY
  19. LIMAPROST [Concomitant]
     Active Substance: LIMAPROST
     Dosage: 10 UG, DAILY
  20. MAGNESIUM OXIDE [Concomitant]
     Active Substance: MAGNESIUM OXIDE
     Dosage: 990 MG, DAILY
  21. LIDOCAINE [Concomitant]
     Active Substance: LIDOCAINE
  22. PHENYLEPHRINE [Concomitant]
     Active Substance: PHENYLEPHRINE HYDROCHLORIDE
     Dosage: 1.8 MG
  23. EPHEDRINE [Concomitant]
     Active Substance: EPHEDRINE
     Dosage: 36 MG
  24. ACETAMINOPHEN [Concomitant]
     Active Substance: ACETAMINOPHEN
     Dosage: 1000 MG

REACTIONS (1)
  - Vocal cord disorder [Recovered/Resolved]
